FAERS Safety Report 11259701 (Version 1)
Quarter: 2015Q3

REPORT INFORMATION
  Report Type: Spontaneous
  Country: US (occurrence: None)
  Receive Date: 20150709
  Receipt Date: 20150709
  Transmission Date: 20151125
  Serious: No
  Sender: FDA-Public Use
  Company Number: None

PATIENT
  Age: 48 Year
  Sex: Female

DRUGS (2)
  1. NITROFURANTOIN. [Suspect]
     Active Substance: NITROFURANTOIN
     Route: 048
     Dates: start: 20140519, end: 20140523
  2. CEFTRIAXONE. [Suspect]
     Active Substance: CEFTRIAXONE
     Route: 030
     Dates: start: 20140519, end: 20140519

REACTIONS (10)
  - Hepatic necrosis [None]
  - Hepatic fibrosis [None]
  - Alanine aminotransferase increased [None]
  - Jaundice [None]
  - Fatigue [None]
  - Nausea [None]
  - Aspartate aminotransferase increased [None]
  - Hepatitis [None]
  - Rash [None]
  - Drug-induced liver injury [None]

NARRATIVE: CASE EVENT DATE: 20140527
